FAERS Safety Report 9127164 (Version 1)
Quarter: 2013Q1

REPORT INFORMATION
  Report Type: Spontaneous
  Country: US (occurrence: US)
  Receive Date: 20130228
  Receipt Date: 20130228
  Transmission Date: 20140127
  Serious: No
  Sender: FDA-Public Use
  Company Number: US-MYLANLABS-2012S1005693

PATIENT
  Age: 83 Year
  Sex: Male

DRUGS (2)
  1. ATENOLOL TABLETS, USP [Suspect]
     Indication: BLOOD PRESSURE INCREASED
     Dosage: 1 TABLET DAILY
     Route: 048
     Dates: start: 20120302
  2. AMLODIPINE [Concomitant]

REACTIONS (4)
  - Lethargy [Not Recovered/Not Resolved]
  - Fatigue [Not Recovered/Not Resolved]
  - Rhinorrhoea [Not Recovered/Not Resolved]
  - Lacrimation increased [Not Recovered/Not Resolved]
